FAERS Safety Report 15521963 (Version 3)
Quarter: 2019Q1

REPORT INFORMATION
  Report Type: Report from Study
  Country: US (occurrence: US)
  Receive Date: 20181017
  Receipt Date: 20190205
  Transmission Date: 20190417
  Serious: Yes (Life-Threatening, Other)
  Sender: FDA-Public Use
  Company Number: US-AMGEN-USASL2018115175

PATIENT
  Age: 84 Year
  Sex: Female

DRUGS (4)
  1. REPATHA [Suspect]
     Active Substance: EVOLOCUMAB
     Indication: BLOOD CHOLESTEROL INCREASED
  2. REPATHA [Suspect]
     Active Substance: EVOLOCUMAB
     Indication: CARDIOVASCULAR DISORDER
     Dosage: 140 MG, Q2WK
     Route: 065
     Dates: start: 201608
  3. PREDNISONE. [Concomitant]
     Active Substance: PREDNISONE
     Dosage: UNK
  4. CORTISONE [Concomitant]
     Active Substance: CORTISONE\HYDROCORTISONE
     Dosage: UNK

REACTIONS (23)
  - Skin exfoliation [Unknown]
  - Bone pain [Unknown]
  - Dehydration [Unknown]
  - Pruritus [Unknown]
  - Pancreatitis [Unknown]
  - Asthenia [Recovered/Resolved]
  - Tooth disorder [Unknown]
  - Blindness [Not Recovered/Not Resolved]
  - Papule [Unknown]
  - Back pain [Unknown]
  - Arthralgia [Unknown]
  - Pain in extremity [Unknown]
  - Influenza like illness [Unknown]
  - Diplopia [Not Recovered/Not Resolved]
  - Dyspnoea [Unknown]
  - Rash generalised [Unknown]
  - Myocardial infarction [Unknown]
  - Head injury [Unknown]
  - Muscle spasms [Unknown]
  - Contusion [Unknown]
  - Fatigue [Unknown]
  - Rash papular [Unknown]
  - Injection site pain [Recovered/Resolved]

NARRATIVE: CASE EVENT DATE: 201712
